FAERS Safety Report 4527717-2 (Version None)
Quarter: 2004Q4

REPORT INFORMATION
  Report Type: 
  Country: None (occurrence: None)
  Receive Date: 20041130
  Receipt Date: 20040817
  Transmission Date: 20050328
  Serious: No
  Sender: FDA-Public Use
  Company Number: 702179

PATIENT
  Age: 52 Year
  Sex: Female
  Weight: 80.7403 kg

DRUGS (5)
  1. AMEVIVE [Suspect]
     Indication: PSORIASIS
     Dosage: 15 MG QW IM
     Route: 030
     Dates: start: 20040617
  2. CIPRO [Concomitant]
  3. ATACAND [Concomitant]
  4. TOPROLOL XL [Concomitant]
  5. LIPITOR [Concomitant]

REACTIONS (4)
  - ERYTHEMA [None]
  - LOCALISED EXFOLIATION [None]
  - RASH MACULAR [None]
  - RASH PUSTULAR [None]
